FAERS Safety Report 15336272 (Version 1)
Quarter: 2018Q3

REPORT INFORMATION
  Report Type: Spontaneous
  Country: US (occurrence: US)
  Receive Date: 20180830
  Receipt Date: 20180830
  Transmission Date: 20181010
  Serious: Yes (Other)
  Sender: FDA-Public Use
  Company Number: PHEH2018US035460

PATIENT
  Sex: Female

DRUGS (1)
  1. GILENYA [Suspect]
     Active Substance: FINGOLIMOD HYDROCHLORIDE
     Indication: SEIZURE
     Dosage: 0.5 MG, QD
     Route: 048
     Dates: start: 20140326

REACTIONS (2)
  - Seizure [Unknown]
  - Product use in unapproved indication [Unknown]
